FAERS Safety Report 23375096 (Version 2)
Quarter: 2024Q1

REPORT INFORMATION
  Report Type: Spontaneous
  Country: US (occurrence: US)
  Receive Date: 20240106
  Receipt Date: 20240207
  Transmission Date: 20240410
  Serious: No
  Sender: FDA-Public Use
  Company Number: US-GSK-US2023AMR181734

PATIENT

DRUGS (1)
  1. ALBUTEROL SULFATE [Suspect]
     Active Substance: ALBUTEROL SULFATE
     Indication: Chronic obstructive pulmonary disease
     Dosage: UNK,(90 MCG, 18G/200 METERED), Q4H AS NEEDED

REACTIONS (3)
  - Device use issue [Unknown]
  - Wrong technique in product usage process [Unknown]
  - Product complaint [Unknown]
